FAERS Safety Report 7632496-6 (Version None)
Quarter: 2011Q3

REPORT INFORMATION
  Report Type: 
  Country: None (occurrence: None)
  Receive Date: 20110725
  Receipt Date: 20100929
  Transmission Date: 20111222
  Serious: Yes (Other)
  Sender: FDA-Public Use
  Company Number: US-BRISTOL-MYERS SQUIBB COMPANY-15294911

PATIENT
  Age: 85 Year
  Sex: Female

DRUGS (1)
  1. COUMADIN [Suspect]
     Indication: ATRIAL FIBRILLATION
     Dosage: LOT/BATCH NUMBER:51672-4032-UI MFR TARO EXP DATE:30-JUL-11
     Route: 048
     Dates: start: 20100701

REACTIONS (5)
  - BLUE TOE SYNDROME [None]
  - PAIN [None]
  - SKIN BURNING SENSATION [None]
  - PARAESTHESIA [None]
  - FEELING HOT [None]
